FAERS Safety Report 23688252 (Version 2)
Quarter: 2024Q2

REPORT INFORMATION
  Report Type: Spontaneous
  Country: FR (occurrence: None)
  Receive Date: 20240329
  Receipt Date: 20240417
  Transmission Date: 20240715
  Serious: Yes (Other)
  Sender: FDA-Public Use
  Company Number: 2024A075971

PATIENT
  Age: 85 Year
  Sex: Female

DRUGS (1)
  1. OMEPRAZOLE [Suspect]
     Active Substance: OMEPRAZOLE
     Indication: Gastrooesophageal reflux disease
     Dosage: USING FOR 20 YEARS, IN THE MORNING

REACTIONS (6)
  - Lumbar vertebral fracture [Unknown]
  - Pneumonia [Recovered/Resolved]
  - Arthralgia [Not Recovered/Not Resolved]
  - Constipation [Unknown]
  - Throat irritation [Unknown]
  - Large intestine polyp [Recovered/Resolved]
